FAERS Safety Report 9227396 (Version 1)
Quarter: 2013Q2

REPORT INFORMATION
  Report Type: Spontaneous
  Country: US (occurrence: None)
  Receive Date: 20130411
  Receipt Date: 20130411
  Transmission Date: 20140414
  Serious: Yes (Life-Threatening, Other)
  Sender: FDA-Public Use
  Company Number: None

PATIENT
  Age: 66 Year
  Sex: Female
  Weight: 56.25 kg

DRUGS (2)
  1. EXJADE [Suspect]
     Indication: REFRACTORY CYTOPENIA WITH UNILINEAGE DYSPLASIA
     Route: 048
     Dates: start: 20120924, end: 20130404
  2. EXJADE [Suspect]
     Indication: IRON OVERLOAD
     Route: 048
     Dates: start: 20120924, end: 20130404

REACTIONS (1)
  - Myocardial infarction [None]
